FAERS Safety Report 5613415-0 (Version None)
Quarter: 2008Q1

REPORT INFORMATION
  Report Type: 
  Country: None (occurrence: None)
  Receive Date: 20080129
  Receipt Date: 20071107
  Transmission Date: 20080703
  Serious: Yes (Hospitalization)
  Sender: FDA-Public Use
  Company Number: 2007S1010139

PATIENT
  Age: 43 Year
  Sex: Male

DRUGS (5)
  1. ALLOPURINOL [Suspect]
     Indication: DRUG USE FOR UNKNOWN INDICATION
  2. HYDROXYCARBAMIDE (HYDROXYCARBAMIDE) [Suspect]
     Indication: ACUTE MYELOID LEUKAEMIA
  3. CARBOPLATIN [Suspect]
     Indication: DRUG USE FOR UNKNOWN INDICATION
  4. DAUNORUBICIN HCL [Suspect]
     Indication: DRUG USE FOR UNKNOWN INDICATION
  5. RASBURICASE (RASBURICASE) [Concomitant]
     Indication: DRUG USE FOR UNKNOWN INDICATION

REACTIONS (6)
  - ACUTE MYELOID LEUKAEMIA [None]
  - BLOOD BICARBONATE DECREASED [None]
  - BLOOD CREATINE INCREASED [None]
  - HAEMODIALYSIS [None]
  - OLIGURIA [None]
  - TUMOUR LYSIS SYNDROME [None]
